FAERS Safety Report 13049605 (Version 1)
Quarter: 2016Q4

REPORT INFORMATION
  Report Type: Spontaneous
  Country: GB (occurrence: GB)
  Receive Date: 20161221
  Receipt Date: 20161221
  Transmission Date: 20170207
  Serious: Yes (Hospitalization)
  Sender: FDA-Public Use
  Company Number: GB-TEVA-721217ACC

PATIENT
  Age: 37 Year
  Sex: Female
  Weight: 68.48 kg

DRUGS (3)
  1. MIRTAZAPINE. [Suspect]
     Active Substance: MIRTAZAPINE
     Indication: DEPRESSION
     Route: 048
     Dates: start: 2016, end: 201611
  2. ZOPICLONE [Suspect]
     Active Substance: ZOPICLONE
     Indication: ADVANCED SLEEP PHASE
     Route: 048
     Dates: start: 2016, end: 201611
  3. RISPERIDONE. [Concomitant]
     Active Substance: RISPERIDONE

REACTIONS (3)
  - Obsessive-compulsive disorder [Recovering/Resolving]
  - Suicidal ideation [Unknown]
  - Psychotic disorder [Unknown]

NARRATIVE: CASE EVENT DATE: 201609
